FAERS Safety Report 9305356 (Version 1)
Quarter: 2013Q2

REPORT INFORMATION
  Report Type: Spontaneous
  Country: US (occurrence: None)
  Receive Date: 20130520
  Receipt Date: 20130520
  Transmission Date: 20140414
  Serious: Yes (Other)
  Sender: FDA-Public Use
  Company Number: IPC201305-000192

PATIENT
  Age: 68 Year
  Sex: Female

DRUGS (3)
  1. ALLOPURINOL (ALLOPURINOL) UNKNOWN [Suspect]
  2. MYCOPHENOLATE MOFETIL (MYCOPHENOLATE MOFETIL) [Suspect]
  3. NESIRITIDE [Suspect]

REACTIONS (8)
  - Stevens-Johnson syndrome [None]
  - Myocarditis [None]
  - Pneumatosis intestinalis [None]
  - Atrioventricular block complete [None]
  - Hyperglycaemia [None]
  - Coronary artery disease [None]
  - Hypotension [None]
  - Pulmonary oedema [None]
